FAERS Safety Report 15942585 (Version 2)
Quarter: 2019Q1

REPORT INFORMATION
  Report Type: Spontaneous
  Country: BE (occurrence: BE)
  Receive Date: 20190210
  Receipt Date: 20190225
  Transmission Date: 20190417
  Serious: Yes (Hospitalization, Other)
  Sender: FDA-Public Use
  Company Number: PHHY2019BE028118

PATIENT
  Age: 69 Year
  Sex: Female
  Weight: 58.6 kg

DRUGS (18)
  1. FLUOROURACIL. [Suspect]
     Active Substance: FLUOROURACIL
     Dosage: 660 MG, CYCLICAL
     Route: 040
     Dates: start: 20181202, end: 20181202
  2. LIVIAL [Concomitant]
     Active Substance: TIBOLONE
     Indication: HORMONE LEVEL ABNORMAL
     Dosage: UNK
     Route: 065
  3. DAFALGAN [Concomitant]
     Active Substance: ACETAMINOPHEN
     Indication: PRODUCT USED FOR UNKNOWN INDICATION
     Dosage: UNK
     Route: 065
  4. DAFALGAN CODEINE [Concomitant]
     Active Substance: ACETAMINOPHEN\CODEINE PHOSPHATE
     Indication: PRODUCT USED FOR UNKNOWN INDICATION
     Dosage: UNK
     Route: 065
  5. FLUOROURACIL. [Suspect]
     Active Substance: FLUOROURACIL
     Indication: PRODUCT USED FOR UNKNOWN INDICATION
     Dosage: 3960 MG, Q2W
     Route: 042
     Dates: start: 20181130, end: 20181130
  6. FLUOROURACIL. [Suspect]
     Active Substance: FLUOROURACIL
     Dosage: 660 MG, QOW
     Route: 040
     Dates: start: 20181130, end: 20181130
  7. OXALIPLATIN. [Suspect]
     Active Substance: OXALIPLATIN
     Indication: PANCREATIC CARCINOMA METASTATIC
     Dosage: 140.25 MG, Q2W
     Route: 042
     Dates: start: 20181130, end: 20181130
  8. FLUOROURACIL. [Suspect]
     Active Substance: FLUOROURACIL
     Dosage: UNK UNK, Q2W
     Route: 042
     Dates: start: 20181230, end: 20181230
  9. LOORTAN [Concomitant]
     Active Substance: LOSARTAN POTASSIUM
     Indication: HYPERTENSION
     Dosage: UNK
     Route: 065
  10. FLUOROURACIL. [Suspect]
     Active Substance: FLUOROURACIL
     Dosage: 3960 MG, Q2W
     Route: 042
     Dates: start: 20181130, end: 20181130
  11. FLUOROURACIL. [Suspect]
     Active Substance: FLUOROURACIL
     Dosage: UNK UNK, Q2W
     Route: 042
     Dates: start: 20190105
  12. TRAUMEEL S [Concomitant]
     Active Substance: HOMEOPATHICS
     Indication: ABDOMINAL PAIN UPPER
     Dosage: UNK
     Route: 065
  13. CRESTOR [Concomitant]
     Active Substance: ROSUVASTATIN CALCIUM
     Indication: HYPERCHOLESTEROLAEMIA
     Dosage: UNK
     Route: 065
  14. FOLIC ACID. [Suspect]
     Active Substance: FOLIC ACID
     Dosage: 660 MG, QOW
     Route: 042
     Dates: start: 20181228
  15. FOLIC ACID. [Suspect]
     Active Substance: FOLIC ACID
     Indication: PRODUCT USED FOR UNKNOWN INDICATION
     Dosage: 660 MG, Q2W
     Route: 042
     Dates: start: 20181130, end: 20181130
  16. FORLAX [Concomitant]
     Active Substance: POLYETHYLENE GLYCOL 4000
     Indication: CONSTIPATION
     Dosage: UNK
     Route: 065
  17. OXALIPLATIN. [Suspect]
     Active Substance: OXALIPLATIN
     Dosage: 140.25 MG, QOW
     Route: 042
     Dates: start: 20181228
  18. ZOLPIDEM [Concomitant]
     Active Substance: ZOLPIDEM\ZOLPIDEM TARTRATE
     Indication: INSOMNIA
     Dosage: UNK
     Route: 065

REACTIONS (2)
  - Hemiplegia [Not Recovered/Not Resolved]
  - Embolic stroke [Not Recovered/Not Resolved]

NARRATIVE: CASE EVENT DATE: 20190106
